FAERS Safety Report 5634846-9 (Version None)
Quarter: 2008Q1

REPORT INFORMATION
  Report Type: 
  Country: None (occurrence: None)
  Receive Date: 20080221
  Receipt Date: 20080221
  Transmission Date: 20080703
  Serious: Yes (Other)
  Sender: FDA-Public Use
  Company Number: None

PATIENT
  Age: 19 Month
  Sex: Female

DRUGS (2)
  1. JOHNSON'S BABY SHAMPOO [Suspect]
     Dates: start: 20070101, end: 20080101
  2. JOHNSONS BABY LOTION [Concomitant]

REACTIONS (1)
  - CONVULSION [None]
